FAERS Safety Report 22243363 (Version 1)
Quarter: 2023Q2

REPORT INFORMATION
  Report Type: Spontaneous
  Country: BE (occurrence: None)
  Receive Date: 20230424
  Receipt Date: 20230424
  Transmission Date: 20230721
  Serious: Yes (Other)
  Sender: FDA-Public Use
  Company Number: BE-Merck Healthcare KGaA-9394810

PATIENT
  Age: 74 Year
  Sex: Male

DRUGS (1)
  1. BAVENCIO [Suspect]
     Active Substance: AVELUMAB
     Indication: Transitional cell carcinoma
     Dosage: 6 WEEK BREAK IN AUG 2022, SEP 2022 HOLIDAYS
     Dates: start: 202202, end: 202210

REACTIONS (2)
  - Thrombocytopenia [Unknown]
  - Varices oesophageal [Unknown]
